FAERS Safety Report 14673168 (Version 1)
Quarter: 2018Q1

REPORT INFORMATION
  Report Type: Spontaneous
  Country: JP (occurrence: JP)
  Receive Date: 20180323
  Receipt Date: 20180323
  Transmission Date: 20180509
  Serious: Yes (Hospitalization)
  Sender: FDA-Public Use
  Company Number: JP-ROCHE-2093358

PATIENT
  Age: 59 Year
  Sex: Male

DRUGS (9)
  1. ADRENALINE [Concomitant]
     Active Substance: EPINEPHRINE
     Dosage: ON DAY 24
     Route: 065
  2. CYCLOSPORIN A [Concomitant]
     Active Substance: CYCLOSPORINE
     Dosage: PER DAY
     Route: 065
  3. TOCILIZUMAB. [Suspect]
     Active Substance: TOCILIZUMAB
     Indication: CASTLEMAN^S DISEASE
     Route: 042
  4. METHYLPREDNISOLONE. [Concomitant]
     Active Substance: METHYLPREDNISOLONE
     Dosage: FOR 3 DAYS
     Route: 065
  5. PREDNISOLONE. [Concomitant]
     Active Substance: PREDNISOLONE
  6. VANCOMYCIN [Concomitant]
     Active Substance: VANCOMYCIN
     Dosage: THROUGH LEVEL OF 15-20 LG/ML
     Route: 065
  7. DOXYCYCLINE. [Concomitant]
     Active Substance: DOXYCYCLINE
     Route: 065
  8. MEROPENEM. [Concomitant]
     Active Substance: MEROPENEM
     Dosage: EVERY 8 HOURS
     Route: 065
  9. PREDNISOLONE. [Concomitant]
     Active Substance: PREDNISOLONE
     Dosage: ON DAY 13
     Route: 065

REACTIONS (1)
  - Generalised oedema [Recovered/Resolved]
